FAERS Safety Report 4607066-4 (Version None)
Quarter: 2005Q1

REPORT INFORMATION
  Report Type: 
  Country: None (occurrence: None)
  Receive Date: 20050314
  Receipt Date: 20050302
  Transmission Date: 20050727
  Serious: Yes (Hospitalization)
  Sender: FDA-Public Use
  Company Number: FR-BRISTOL-MYERS SQUIBB COMPANY-12890604

PATIENT
  Age: 58 Year
  Sex: Male

DRUGS (10)
  1. ENDOXAN [Suspect]
     Indication: LYMPHOMA
     Dosage: THERAPY STOP DATE:  27-DEC-2004
     Dates: start: 20041126, end: 20041126
  2. CYCLOPHOSPHAMIDE [Suspect]
     Indication: LYMPHOMA
     Dosage: START DATE:  MAR-2004
     Dates: start: 20040301, end: 20040621
  3. DOXORUBICIN HCL [Suspect]
     Indication: LYMPHOMA
     Dosage: START DATE:  MAR-2004
     Dates: start: 20040301, end: 20040621
  4. UROMITEXAN [Suspect]
     Indication: LYMPHOMA
     Dosage: START DATE:  MAR-2004
     Dates: start: 20040301, end: 20040621
  5. VINCRISTINE [Suspect]
     Indication: LYMPHOMA
     Dosage: START DATE:  MAR-2004
     Dates: start: 20040301, end: 20040621
  6. MABTHERA [Suspect]
     Indication: LYMPHOMA
     Dosage: 375 MG/M2
     Route: 042
     Dates: start: 20041126, end: 20041126
  7. FLUDARA [Suspect]
     Indication: LYMPHOMA
     Dosage: THERAPY STOP DATE:  27-DEC-2004
     Dates: start: 20041126, end: 20041126
  8. PREDNISONE [Suspect]
     Indication: LYMPHOMA
     Dosage: START DATE:  MAR-2004
     Dates: start: 20040301, end: 20040621
  9. NONSTEROIDAL ANTI-INFLAMMATORY [Concomitant]
     Indication: ANKYLOSING SPONDYLITIS
     Dates: start: 19640101
  10. PIROXICAM [Concomitant]
     Indication: ANKYLOSING SPONDYLITIS

REACTIONS (7)
  - CHOLESTASIS [None]
  - CYTOLYTIC HEPATITIS [None]
  - HEPATIC ENZYME INCREASED [None]
  - LEUKOPENIA [None]
  - LYMPHOMA [None]
  - NEUTROPENIA [None]
  - RECURRENT CANCER [None]
